FAERS Safety Report 4655860-6 (Version None)
Quarter: 2005Q2

REPORT INFORMATION
  Report Type: 
  Country: None (occurrence: None)
  Receive Date: 20050505
  Receipt Date: 20050426
  Transmission Date: 20051028
  Serious: Yes (Hospitalization, Other)
  Sender: FDA-Public Use
  Company Number: 2004242949TH

PATIENT
  Age: 49 Year
  Sex: Male

DRUGS (3)
  1. BEXTRA [Suspect]
     Indication: PAIN
     Dosage: 1 IN 1 D, ORAL
     Route: 048
  2. GABAPENTIN [Concomitant]
  3. COLCHICINE (COLCHICINE) [Concomitant]

REACTIONS (1)
  - STEVENS-JOHNSON SYNDROME [None]
